FAERS Safety Report 8355462-4 (Version None)
Quarter: 2012Q2

REPORT INFORMATION
  Report Type: 
  Country: None (occurrence: None)
  Receive Date: 20120512
  Receipt Date: 20120501
  Transmission Date: 20120825
  Serious: Yes (Hospitalization)
  Sender: FDA-Public Use
  Company Number: CA-ELI_LILLY_AND_COMPANY-CA201205000888

PATIENT
  Age: 63 Year
  Sex: Female

DRUGS (5)
  1. FORTEO [Suspect]
     Indication: OSTEOPOROSIS
     Dosage: 20 UG, QD
     Route: 058
     Dates: start: 20110621, end: 20120301
  2. VENTOLIN [Concomitant]
  3. CITALOPRAM [Concomitant]
  4. ADVAIR DISKUS 100/50 [Concomitant]
  5. ATROVENT [Concomitant]

REACTIONS (2)
  - HIP FRACTURE [None]
  - POST PROCEDURAL COMPLICATION [None]
